FAERS Safety Report 7511301-2 (Version None)
Quarter: 2011Q2

REPORT INFORMATION
  Report Type: 
  Country: None (occurrence: None)
  Receive Date: 20110531
  Receipt Date: 20110228
  Transmission Date: 20111010
  Serious: Yes (Hospitalization, Other)
  Sender: FDA-Public Use
  Company Number: US-BAYER-201010673NA

PATIENT
  Age: 43 Year
  Sex: Female
  Weight: 59 kg

DRUGS (6)
  1. ZANTAC [Concomitant]
     Dosage: UNK
     Dates: start: 20071001
  2. YASMIN [Suspect]
     Indication: ORAL CONTRACEPTION
     Dosage: 1 DF (DAILY DOSE), QD, ORAL
     Route: 048
     Dates: start: 20070909, end: 20071015
  3. YAZ [Suspect]
     Indication: ACNE
     Dosage: UNK
     Dates: start: 20070919, end: 20071116
  4. DARVOCET-N 50 [Concomitant]
     Dosage: UNK
     Dates: start: 20071001
  5. YASMIN [Suspect]
     Indication: MENOPAUSAL SYMPTOMS
  6. DARVOCET-N 50 [Concomitant]

REACTIONS (6)
  - SWELLING [None]
  - PULMONARY EMBOLISM [None]
  - PULMONARY INFARCTION [None]
  - PAIN [None]
  - CHEST PAIN [None]
  - HYPOAESTHESIA [None]
